FAERS Safety Report 11889556 (Version 1)
Quarter: 2016Q1

REPORT INFORMATION
  Report Type: Spontaneous
  Country: CL (occurrence: CL)
  Receive Date: 20160105
  Receipt Date: 20160105
  Transmission Date: 20160526
  Serious: Yes (Death, Hospitalization, Other)
  Sender: FDA-Public Use
  Company Number: CL-BAXTER-2015BAX070762

PATIENT
  Age: 77 Year
  Sex: Male
  Weight: 54 kg

DRUGS (2)
  1. DIANEAL WITH DEXTROSE [Suspect]
     Active Substance: CALCIUM CHLORIDE\DEXTROSE\MAGNESIUM CHLORIDE\SODIUM CHLORIDE\SODIUM LACTATE
     Indication: CHRONIC KIDNEY DISEASE
     Dosage: 1 BAG
     Route: 033
     Dates: end: 20151224
  2. DIANEAL WITH DEXTROSE [Suspect]
     Active Substance: CALCIUM CHLORIDE\DEXTROSE\MAGNESIUM CHLORIDE\SODIUM CHLORIDE\SODIUM LACTATE
     Indication: PERITONEAL DIALYSIS

REACTIONS (7)
  - Cardio-respiratory arrest [Recovered/Resolved]
  - Intestinal obstruction [Unknown]
  - Cardio-respiratory arrest [Fatal]
  - Sepsis [Fatal]
  - Benign prostatic hyperplasia [Unknown]
  - Bacterial translocation [Unknown]
  - Peritonitis [Unknown]

NARRATIVE: CASE EVENT DATE: 20151211
